FAERS Safety Report 7329038-1 (Version None)
Quarter: 2011Q1

REPORT INFORMATION
  Report Type: 
  Country: None (occurrence: None)
  Receive Date: 20110303
  Receipt Date: 20110223
  Transmission Date: 20110831
  Serious: Yes (Death)
  Sender: FDA-Public Use
  Company Number: JP-ASTRAZENECA-2011SE11146

PATIENT
  Age: 36 Year
  Sex: Female

DRUGS (2)
  1. SEROQUEL [Suspect]
     Dosage: MORE THAN 200 TABLETS (THERE WAS A POSSIBILITY THAT PATIENT STORED OTHER DRUGS PRESCRIBED BEFORE)
     Route: 048
  2. SEROQUEL [Suspect]
     Indication: DYSTHYMIC DISORDER
     Dosage: BEFORE BEDTIME 600 MG AND DAYTIME 100 MG
     Route: 048

REACTIONS (2)
  - COMPLETED SUICIDE [None]
  - INTENTIONAL OVERDOSE [None]
